FAERS Safety Report 10507356 (Version 1)
Quarter: 2014Q3

REPORT INFORMATION
  Report Type: Spontaneous
  Country: US (occurrence: None)
  Receive Date: 20140915
  Receipt Date: 20140915
  Transmission Date: 20150326
  Serious: Yes (Hospitalization, Other)
  Sender: FDA-Public Use
  Company Number: 2014-US-004069

PATIENT
  Age: 19 Year
  Sex: Female
  Weight: 122.4 kg

DRUGS (3)
  1. XYREM [Suspect]
     Active Substance: SODIUM OXYBATE
     Indication: NARCOLEPSY
     Route: 048
     Dates: start: 201301
  2. RISPERIDONE(RISPERIDONE) [Concomitant]
  3. LAMICTAL(LAMOTRIGINE) [Concomitant]

REACTIONS (3)
  - Suicide attempt [None]
  - Intentional overdose [None]
  - Gastric lavage [None]

NARRATIVE: CASE EVENT DATE: 201403
